FAERS Safety Report 14825665 (Version 4)
Quarter: 2024Q2

REPORT INFORMATION
  Report Type: Report from Study
  Country: CA (occurrence: None)
  Receive Date: 20180430
  Receipt Date: 20240403
  Transmission Date: 20240715
  Serious: Yes (Life-Threatening, Hospitalization, Other)
  Sender: FDA-Public Use
  Company Number: CA-ORION CORPORATION ORION PHARMA-TREX2018-1284

PATIENT
  Age: 63 Year
  Sex: Female

DRUGS (5)
  1. METHOTREXATE [Suspect]
     Active Substance: METHOTREXATE
     Indication: Product used for unknown indication
     Dates: start: 20021111, end: 20160210
  2. ENBREL [Suspect]
     Active Substance: ETANERCEPT
     Indication: Rheumatoid arthritis
     Dosage: 2 TIMES/WEEK
     Dates: start: 20030715
  3. ENBREL [Suspect]
     Active Substance: ETANERCEPT
  4. LEFLUNOMIDE [Concomitant]
     Active Substance: LEFLUNOMIDE
  5. HYDROXYCHLOROQUINE [Concomitant]
     Active Substance: HYDROXYCHLOROQUINE
     Dates: start: 20010418, end: 20140510

REACTIONS (10)
  - Drug ineffective [Recovered/Resolved]
  - Cerebrovascular accident [Recovered/Resolved]
  - Seizure [Recovered/Resolved]
  - Head injury [Recovered/Resolved]
  - Adverse event [Unknown]
  - Cellulitis [Unknown]
  - Near death experience [Unknown]
  - Dry mouth [Not Recovered/Not Resolved]
  - Coma [Recovered/Resolved]
  - Decreased immune responsiveness [Unknown]

NARRATIVE: CASE EVENT DATE: 20160101
